FAERS Safety Report 9239307 (Version 1)
Quarter: 2013Q2

REPORT INFORMATION
  Report Type: Other
  Country: DE (occurrence: DE)
  Receive Date: 20130418
  Receipt Date: 20130418
  Transmission Date: 20140414
  Serious: Yes (Other)
  Sender: FDA-Public Use
  Company Number: DE-ACTAVIS-2013-06444

PATIENT
  Age: 77 Year
  Sex: Female
  Weight: 77 kg

DRUGS (5)
  1. PANTOPRAZOLE SODIUM (UNKNOWN)(PANTOPRAZOLE SODIUM) UNK, UNKUNK [Suspect]
     Indication: OESOPHAGITIS
     Dosage: 40 MG, DAILY, 20MG ONCE DAILY FROM MID AUGUST
     Route: 048
     Dates: start: 201204, end: 201209
  2. ORGARAN [Concomitant]
     Indication: COAGULOPATHY
     Dosage: UNK
     Route: 042
  3. MAGNESIUM [Concomitant]
     Indication: HYPERPHOSPHATASAEMIA
     Dosage: 1-1-1
     Route: 048
     Dates: start: 201204
  4. DIGIMERCK [Concomitant]
     Indication: ATRIAL FIBRILLATION
     Dosage: 1-0-0
     Route: 048
     Dates: start: 201204
  5. FUROSEMID                          /00032601/ [Concomitant]
     Indication: OLIGURIA
     Dosage: 0.5-0.5-0
     Route: 048
     Dates: start: 201206

REACTIONS (1)
  - Liver function test abnormal [Recovered/Resolved]
